FAERS Safety Report 4975530-4 (Version None)
Quarter: 2006Q1

REPORT INFORMATION
  Report Type: 
  Country: None (occurrence: None)
  Receive Date: 20060223
  Receipt Date: 20051206
  Transmission Date: 20060701
  Serious: No
  Sender: FDA-Public Use
  Company Number: SUSI-2005-00858

PATIENT
  Age: 73 Year
  Sex: Female
  Weight: 61.5 kg

DRUGS (1)
  1. FOSRENOL [Suspect]
     Indication: HYPERPHOSPHATAEMIA
     Dosage: 500 MG, 3X/DAY;TID WITH MEALS, ORAL
     Route: 048
     Dates: start: 20051101

REACTIONS (1)
  - TOOTH DISORDER [None]
